FAERS Safety Report 5195258-8 (Version None)
Quarter: 2006Q4

REPORT INFORMATION
  Report Type: 
  Country: None (occurrence: None)
  Receive Date: 20061229
  Receipt Date: 20061110
  Transmission Date: 20070319
  Serious: Yes (Other)
  Sender: FDA-Public Use
  Company Number: JP-PFIZER INC-2006140841

PATIENT
  Age: 43 Year
  Sex: Female

DRUGS (5)
  1. SOLANAX [Suspect]
     Dosage: DAILY DOSE:1.2MG
     Route: 048
  2. DOGMATYL [Concomitant]
  3. DEPAS [Concomitant]
     Route: 048
  4. MYSLEE [Concomitant]
     Route: 048
  5. TOLEDOMIN [Concomitant]
     Route: 048

REACTIONS (2)
  - DELUSION [None]
  - TREMOR [None]
